FAERS Safety Report 6456539-0 (Version None)
Quarter: 2009Q4

REPORT INFORMATION
  Report Type: 
  Country: None (occurrence: None)
  Receive Date: 20091119
  Receipt Date: 20091118
  Transmission Date: 20100525
  Serious: Yes (Disabling)
  Sender: FDA-Public Use
  Company Number: GB-EBEWE-1704MTX09

PATIENT
  Age: 44 Year
  Sex: Female
  Weight: 54 kg

DRUGS (7)
  1. METHOTREXATE [Suspect]
     Indication: RHEUMATOID ARTHRITIS
     Dosage: 12.5 MG, WEEKLY, PO
     Route: 048
     Dates: start: 20030701
  2. CO-CODAMOL [Concomitant]
  3. FOLIC ACID [Concomitant]
  4. LANSOPRAZOLE [Concomitant]
  5. NORETHISTERONE [Concomitant]
  6. PARACETAMOL [Concomitant]
  7. TRANEXAMIC ACID [Concomitant]

REACTIONS (1)
  - MENORRHAGIA [None]
